FAERS Safety Report 25180651 (Version 1)
Quarter: 2025Q2

REPORT INFORMATION
  Report Type: Spontaneous
  Country: US (occurrence: US)
  Receive Date: 20250409
  Receipt Date: 20250409
  Transmission Date: 20250717
  Serious: No
  Sender: BIOMARIN
  Company Number: US-BIOMARINAP-US-2025-165072

PATIENT

DRUGS (2)
  1. VOXZOGO [Suspect]
     Active Substance: VOSORITIDE
     Indication: Osteochondrodysplasia
     Dosage: UNK, QD
     Route: 058
     Dates: start: 20240711
  2. PREDNISOLONE [Concomitant]
     Active Substance: PREDNISOLONE
     Indication: Product used for unknown indication

REACTIONS (5)
  - Arthralgia [Recovering/Resolving]
  - Gait inability [Recovering/Resolving]
  - Joint noise [Recovering/Resolving]
  - Joint injury [Recovering/Resolving]
  - Scan abnormal [Recovering/Resolving]

NARRATIVE: CASE EVENT DATE: 20241221
